FAERS Safety Report 5717275-9 (Version None)
Quarter: 2008Q2

REPORT INFORMATION
  Report Type: 
  Country: None (occurrence: None)
  Receive Date: 20080424
  Receipt Date: 20080416
  Transmission Date: 20081010
  Serious: Yes (Hospitalization)
  Sender: FDA-Public Use
  Company Number: PHHO2008NL05062

PATIENT
  Age: 43 Year
  Sex: Male
  Weight: 68 kg

DRUGS (4)
  1. NEORAL [Suspect]
     Indication: RENAL TRANSPLANT
     Dosage: 125 MG, BID
     Route: 048
  2. PREDNISONE [Concomitant]
     Indication: RENAL TRANSPLANT
  3. VALCYTE [Concomitant]
  4. COTRIM [Concomitant]

REACTIONS (2)
  - DIARRHOEA [None]
  - PYREXIA [None]
